FAERS Safety Report 16685699 (Version 5)
Quarter: 2019Q4

REPORT INFORMATION
  Report Type: Spontaneous
  Country: US (occurrence: US)
  Receive Date: 20190809
  Receipt Date: 20191213
  Transmission Date: 20200122
  Serious: Yes (Other)
  Sender: FDA-Public Use
  Company Number: US-SA-2019SA212158

PATIENT
  Age: 64 Year
  Sex: Female

DRUGS (1)
  1. DUPIXENT [Suspect]
     Active Substance: DUPILUMAB
     Indication: ASTHMA
     Dosage: 200 MG, QOW
     Route: 058
     Dates: start: 20190130

REACTIONS (8)
  - Vomiting [Unknown]
  - Nephrolithiasis [Unknown]
  - Back pain [Unknown]
  - Psoriasis [Recovering/Resolving]
  - Hypogammaglobulinaemia [Unknown]
  - Nausea [Unknown]
  - Bronchitis [Unknown]
  - Neck pain [Unknown]
